FAERS Safety Report 8981463 (Version 2)
Quarter: 2013Q2

REPORT INFORMATION
  Report Type: Spontaneous
  Country: US (occurrence: US)
  Receive Date: 20121221
  Receipt Date: 20130418
  Transmission Date: 20140414
  Serious: Yes (Hospitalization)
  Sender: FDA-Public Use
  Company Number: US-BAYER-2012-127351

PATIENT
  Age: 27 Year
  Sex: Female

DRUGS (17)
  1. YAZ [Suspect]
  2. NEXIUM [Concomitant]
  3. METOCLOPRAMIDE [Concomitant]
     Dosage: 10 MG, UNK
  4. OXYCODONE/APAP [Concomitant]
     Dosage: 5/500
  5. AZITHROMYCIN [Concomitant]
     Dosage: 250 MG, UNK
  6. CEPHALEXIN [Concomitant]
     Dosage: 500 MG, UNK
  7. MELOXICAM [Concomitant]
     Dosage: 15 MG, UNK
  8. FLUCONAZOLE [Concomitant]
     Dosage: 150 MG, UNK
  9. COUGH AND COLD PREPARATIONS [Concomitant]
     Dosage: 100MG/5 ML
  10. ERYTHROMYCIN [Concomitant]
     Dosage: 400 MG, UNK
  11. HYDROCODONE BITARTRATE W/IBUPROFEN [Concomitant]
  12. FELODIPINE [Concomitant]
     Dosage: 2.5 MG, ER
  13. AMOXICILLIN [Concomitant]
     Dosage: 250 MG, UNK
  14. IBUPROFEN [Concomitant]
     Dosage: 600 MG, UNK
  15. LEVAQUIN [Concomitant]
     Dosage: 500 MG, DAILY
  16. LORTAB [Concomitant]
     Dosage: 7.5 MG, PRN
  17. HYDROCODONE [Concomitant]

REACTIONS (1)
  - Pulmonary embolism [None]
